FAERS Safety Report 6138518-6 (Version None)
Quarter: 2009Q1

REPORT INFORMATION
  Report Type: 
  Country: None (occurrence: None)
  Receive Date: 20090331
  Receipt Date: 20090326
  Transmission Date: 20090719
  Serious: Yes (Life-Threatening, Hospitalization, Other)
  Sender: FDA-Public Use
  Company Number: US-ELI_LILLY_AND_COMPANY-US200712000587

PATIENT
  Sex: Male
  Weight: 85.714 kg

DRUGS (19)
  1. BYETTA [Suspect]
     Dosage: 10 UG, 2/D
     Route: 058
     Dates: start: 20060502, end: 20070915
  2. HUMULIN N [Concomitant]
     Indication: TYPE 2 DIABETES MELLITUS
     Dosage: 30 U, EACH MORNING
     Dates: end: 20071001
  3. HUMULIN N [Concomitant]
     Dosage: 10 U, EACH EVENING
     Dates: start: 20050101, end: 20071001
  4. HUMULIN N [Concomitant]
     Dosage: 24 U, EACH MORNING
     Route: 065
     Dates: start: 20071001
  5. METFORMIN HCL [Concomitant]
     Indication: DIABETES MELLITUS
     Dosage: 1000 UNK, 2/D
     Route: 048
  6. METOPROLOL [Concomitant]
     Dosage: 25 MG, EACH EVENING
     Route: 048
  7. METOPROLOL [Concomitant]
     Dosage: 25 MG, EACH EVENING
     Route: 048
  8. METOPROLOL [Concomitant]
     Dosage: 50 MG, 2/D
     Route: 065
     Dates: start: 20071001
  9. GLIPIZIDE [Concomitant]
     Dosage: 5 MG, EACH MORNING
  10. ZOCOR [Concomitant]
     Dosage: 20 MG, EACH EVENING
  11. ZANTAC [Concomitant]
     Dosage: 150 UNK, DAILY (1/D)
  12. ZANTAC [Concomitant]
     Dosage: 150 MG, 2/D
     Route: 065
     Dates: start: 20071001
  13. LASIX [Concomitant]
     Dosage: 20 MG, EACH MORNING
  14. LASIX [Concomitant]
     Dosage: 40 MG, DAILY (1/D)
     Route: 065
     Dates: start: 20070901
  15. COUMADIN [Concomitant]
     Dosage: 5 MG, UNK
  16. COUMADIN [Concomitant]
     Dosage: 2.5 MG, DAILY (1/D)
     Route: 065
  17. FISH OIL [Concomitant]
     Dosage: UNK, DAILY (1/D)
     Route: 048
  18. VITAMIN B6 [Concomitant]
     Dosage: 100 MG, DAILY (1/D)
  19. FIBERCON [Concomitant]
     Dosage: UNK, DAILY (1/D)
     Route: 048

REACTIONS (7)
  - DIABETES MELLITUS INADEQUATE CONTROL [None]
  - HYPONATRAEMIA [None]
  - ILEUS [None]
  - MALNUTRITION [None]
  - PANCREATITIS [None]
  - RENAL FAILURE ACUTE [None]
  - WEIGHT DECREASED [None]
